FAERS Safety Report 21443241 (Version 1)
Quarter: 2022Q4

REPORT INFORMATION
  Report Type: Spontaneous
  Country: US (occurrence: US)
  Receive Date: 20221012
  Receipt Date: 20221012
  Transmission Date: 20230113
  Serious: No
  Sender: FDA-Public Use
  Company Number: US-GLAXOSMITHKLINE-USCH2022037548

PATIENT

DRUGS (4)
  1. FLONASE [Suspect]
     Active Substance: FLUTICASONE PROPIONATE
     Indication: Eye pruritus
     Dosage: UNK
  2. FLONASE [Suspect]
     Active Substance: FLUTICASONE PROPIONATE
     Indication: Lacrimation increased
  3. FLONASE [Suspect]
     Active Substance: FLUTICASONE PROPIONATE
     Indication: Sneezing
  4. FLONASE [Suspect]
     Active Substance: FLUTICASONE PROPIONATE
     Indication: Rhinorrhoea

REACTIONS (1)
  - Therapeutic product effect incomplete [Unknown]
